FAERS Safety Report 19923503 (Version 3)
Quarter: 2022Q3

REPORT INFORMATION
  Report Type: Spontaneous
  Country: JP (occurrence: JP)
  Receive Date: 20211006
  Receipt Date: 20220714
  Transmission Date: 20221027
  Serious: Yes (Hospitalization, Other)
  Sender: FDA-Public Use
  Company Number: JP-GLAXOSMITHKLINE-JP2021JPN205723

PATIENT

DRUGS (23)
  1. LAMICTAL [Suspect]
     Active Substance: LAMOTRIGINE
     Indication: Epilepsy
     Dosage: 25 MG, QD
     Route: 048
     Dates: start: 20210720, end: 20210722
  2. LAMICTAL [Suspect]
     Active Substance: LAMOTRIGINE
     Dosage: 50 MG, QD
     Route: 048
     Dates: start: 20210723, end: 20210817
  3. LAMICTAL [Suspect]
     Active Substance: LAMOTRIGINE
     Dosage: 75 MG, QD
     Route: 048
     Dates: start: 20210818, end: 20210829
  4. LAMICTAL [Suspect]
     Active Substance: LAMOTRIGINE
     Dosage: 25 MG, QD
     Route: 048
     Dates: start: 20210830, end: 20210902
  5. CLOPIDOGREL BISULFATE [Concomitant]
     Active Substance: CLOPIDOGREL BISULFATE
     Dosage: UNK
     Dates: end: 20210714
  6. CLOPIDOGREL BISULFATE [Concomitant]
     Active Substance: CLOPIDOGREL BISULFATE
     Dosage: 75 MG
     Dates: start: 20210818
  7. CARBAMAZEPINE [Concomitant]
     Active Substance: CARBAMAZEPINE
     Dosage: UNK
     Dates: end: 20210714
  8. CARBAMAZEPINE [Concomitant]
     Active Substance: CARBAMAZEPINE
     Dosage: 200 MG
     Dates: start: 202107, end: 20210722
  9. CARBAMAZEPINE [Concomitant]
     Active Substance: CARBAMAZEPINE
     Dosage: 100 MG
     Dates: start: 20210723, end: 20210729
  10. SENNOSIDES [Concomitant]
     Active Substance: SENNOSIDES
     Dosage: UNK
  11. SENNOSIDES [Concomitant]
     Active Substance: SENNOSIDES
     Dosage: UNK
     Dates: start: 20210714, end: 20210720
  12. CILOSTAZOL OD TABLET [Concomitant]
     Dosage: UNK
  13. CILOSTAZOL OD TABLET [Concomitant]
     Dosage: UNK
     Dates: start: 20210714, end: 20210830
  14. MAGNESIUM OXIDE [Concomitant]
     Active Substance: MAGNESIUM OXIDE
     Dosage: UNK
  15. MAGNESIUM OXIDE [Concomitant]
     Active Substance: MAGNESIUM OXIDE
     Dosage: UNK
     Dates: start: 20210714
  16. E KEPPRA TABLETS [Concomitant]
     Dosage: 500 MG, BID
     Dates: start: 20210713, end: 20210715
  17. E KEPPRA TABLETS [Concomitant]
     Dosage: 1000 MG, BID
     Dates: start: 20210716
  18. LICORICE ROOT EXTRACT\RHUBARB [Concomitant]
     Active Substance: LICORICE ROOT EXTRACT\RHUBARB
     Dosage: 2.5 G
     Dates: start: 20210721
  19. CLARITHROMYCIN DS FOR PEDIATRIC 10% [Concomitant]
     Indication: Productive cough
     Dosage: 1 G, QD
     Dates: start: 20210719, end: 20210719
  20. CLARITHROMYCIN DS FOR PEDIATRIC 10% [Concomitant]
     Dosage: 1.5 G, BID
     Dates: start: 20210720
  21. DIAZEPAM [Concomitant]
     Active Substance: DIAZEPAM
     Dosage: 10 MG
     Dates: start: 20210713, end: 20210713
  22. E KEPPRA FOR INTRAVENOUS INFUSION [Concomitant]
     Dosage: 500 MG, BID
     Route: 041
     Dates: start: 20210713, end: 20210715
  23. PICOSULFATE NA ORAL SOLUTION [Concomitant]
     Indication: Constipation
     Dosage: UNK
     Dates: start: 20210717, end: 20210717

REACTIONS (11)
  - Skin disorder [Recovering/Resolving]
  - Erythema [Not Recovered/Not Resolved]
  - Drug reaction with eosinophilia and systemic symptoms [Unknown]
  - Drug eruption [Unknown]
  - Toxic skin eruption [Unknown]
  - Epilepsy [Unknown]
  - Lacunar infarction [Unknown]
  - Facial paresis [Unknown]
  - Eye movement disorder [Unknown]
  - Product use issue [Unknown]
  - Off label use [Unknown]

NARRATIVE: CASE EVENT DATE: 20210720
